FAERS Safety Report 21264137 (Version 2)
Quarter: 2022Q3

REPORT INFORMATION
  Report Type: Report from Study
  Country: IN (occurrence: IN)
  Receive Date: 20220829
  Receipt Date: 20220919
  Transmission Date: 20221027
  Serious: Yes (Hospitalization, Other)
  Sender: FDA-Public Use
  Company Number: IN-BRISTOL-MYERS SQUIBB COMPANY-2022-093840

PATIENT
  Age: 67 Year
  Sex: Male

DRUGS (2)
  1. NIVOLUMAB [Suspect]
     Active Substance: NIVOLUMAB
     Indication: Metastatic malignant melanoma
     Route: 042
     Dates: start: 20210628
  2. NIVOLUMAB [Suspect]
     Active Substance: NIVOLUMAB
     Route: 042

REACTIONS (2)
  - Paralysis [Unknown]
  - Gait disturbance [Unknown]
